FAERS Safety Report 6223475-4 (Version None)
Quarter: 2009Q2

REPORT INFORMATION
  Report Type: 
  Country: None (occurrence: None)
  Receive Date: 20090611
  Receipt Date: 20090602
  Transmission Date: 20091009
  Serious: Yes (Other)
  Sender: FDA-Public Use
  Company Number: CA-AMGEN-US350082

PATIENT

DRUGS (2)
  1. NEUPOGEN [Suspect]
     Indication: PERIPHERAL BLOOD STEM CELL APHERESIS
  2. STEMGEN [Suspect]

REACTIONS (1)
  - DRUG INEFFECTIVE [None]
